FAERS Safety Report 5114431-8 (Version None)
Quarter: 2006Q3

REPORT INFORMATION
  Report Type: 
  Country: None (occurrence: None)
  Receive Date: 20060731
  Receipt Date: 20060530
  Transmission Date: 20061208
  Serious: No
  Sender: FDA-Public Use
  Company Number: 2006PV014672

PATIENT
  Age: 68 Year
  Sex: Male
  Weight: 107.0489 kg

DRUGS (3)
  1. BYETTA [Suspect]
     Indication: DIABETES MELLITUS NON-INSULIN-DEPENDENT
     Dosage: 10 MCG;BID;SC
     Route: 058
     Dates: start: 20060101
  2. BYETTA [Suspect]
     Indication: WEIGHT DECREASED
     Dosage: 10 MCG;BID;SC
     Route: 058
     Dates: start: 20060101
  3. PRILOSEC [Concomitant]

REACTIONS (3)
  - DECREASED APPETITE [None]
  - NAUSEA [None]
  - WEIGHT DECREASED [None]
